FAERS Safety Report 20172111 (Version 1)
Quarter: 2021Q4

REPORT INFORMATION
  Report Type: Spontaneous
  Country: US (occurrence: US)
  Receive Date: 20211210
  Receipt Date: 20211210
  Transmission Date: 20220303
  Serious: No
  Sender: FDA-Public Use
  Company Number: US-NOVOPROD-773099

PATIENT
  Age: 62 Year
  Sex: Male

DRUGS (2)
  1. LEVEMIR [Suspect]
     Active Substance: INSULIN DETEMIR
     Indication: Product used for unknown indication
     Dosage: 20 IU, BID
     Route: 065
     Dates: start: 20200203
  2. TRADJENTA [Concomitant]
     Active Substance: LINAGLIPTIN
     Indication: Product used for unknown indication
     Dosage: UNK
     Route: 065

REACTIONS (5)
  - Vitreous floaters [Recovered/Resolved]
  - Blood glucose increased [Recovered/Resolved]
  - Device issue [Unknown]
  - Injection site reaction [Recovered/Resolved]
  - Incorrect dose administered by device [Unknown]

NARRATIVE: CASE EVENT DATE: 20201203
